FAERS Safety Report 14706125 (Version 1)
Quarter: 2018Q2

REPORT INFORMATION
  Report Type: Spontaneous
  Country: US (occurrence: US)
  Receive Date: 20180402
  Receipt Date: 20180402
  Transmission Date: 20180711
  Serious: Yes (Hospitalization)
  Sender: FDA-Public Use
  Company Number: US-VIFOR (INTERNATIONAL) INC.-VIT-2018-03048

PATIENT
  Age: 64 Year
  Sex: Male

DRUGS (22)
  1. SODIUM BICARBONATE. [Concomitant]
     Active Substance: SODIUM BICARBONATE
  2. CARVEDILOL. [Concomitant]
     Active Substance: CARVEDILOL
  3. MIRTAZAPINE. [Concomitant]
     Active Substance: MIRTAZAPINE
  4. ZYPREXA [Concomitant]
     Active Substance: OLANZAPINE
  5. VALSARTAN. [Concomitant]
     Active Substance: VALSARTAN
  6. ACETYLSALICYLIC ACID [Concomitant]
     Active Substance: ASPIRIN
  7. CALCIUM ACETATE. [Concomitant]
     Active Substance: CALCIUM ACETATE
  8. COLACE [Concomitant]
     Active Substance: DOCUSATE SODIUM
  9. FOLIC ACID. [Concomitant]
     Active Substance: FOLIC ACID
  10. MINOXIDIL. [Concomitant]
     Active Substance: MINOXIDIL
  11. PLAVIX [Concomitant]
     Active Substance: CLOPIDOGREL BISULFATE
  12. VELTASSA [Suspect]
     Active Substance: PATIROMER
     Indication: HYPERKALAEMIA
     Route: 048
     Dates: start: 20170927
  13. LIDODERM [Concomitant]
     Active Substance: LIDOCAINE
  14. OMEPRAZOLE. [Concomitant]
     Active Substance: OMEPRAZOLE
  15. TUMS [Concomitant]
     Active Substance: CALCIUM CARBONATE
  16. NORCO [Concomitant]
     Active Substance: ACETAMINOPHEN\HYDROCODONE BITARTRATE
  17. SIMVASTATIN. [Concomitant]
     Active Substance: SIMVASTATIN
  18. TRAMADOL HYDROCHLORIDE. [Concomitant]
     Active Substance: TRAMADOL HYDROCHLORIDE
  19. VALPROIC ACID. [Concomitant]
     Active Substance: VALPROIC ACID
  20. CREON [Concomitant]
     Active Substance: PANCRELIPASE AMYLASE\PANCRELIPASE LIPASE\PANCRELIPASE PROTEASE
  21. ISOSORBIDE MONONITRATE. [Concomitant]
     Active Substance: ISOSORBIDE MONONITRATE
  22. SENNA ALEXANDRINA [Concomitant]
     Active Substance: SENNA LEAF

REACTIONS (1)
  - Medical device change [Unknown]

NARRATIVE: CASE EVENT DATE: 20180322
